FAERS Safety Report 10084006 (Version 2)
Quarter: 2014Q2

REPORT INFORMATION
  Report Type: Spontaneous
  Country: US (occurrence: US)
  Receive Date: 20140417
  Receipt Date: 20140512
  Transmission Date: 20141212
  Serious: Yes (Hospitalization)
  Sender: FDA-Public Use
  Company Number: US-BAYER-2014-056460

PATIENT
  Age: 21 Year
  Sex: Female
  Weight: 67 kg

DRUGS (2)
  1. YASMIN [Suspect]
     Indication: CONTRACEPTION
  2. XANAX [Concomitant]
     Dosage: 0.25 MG, Q 8 HOURS AS NEEDED
     Route: 048

REACTIONS (1)
  - Pulmonary embolism [None]
